FAERS Safety Report 6992117-2 (Version None)
Quarter: 2010Q3

REPORT INFORMATION
  Report Type: 
  Country: None (occurrence: None)
  Receive Date: 20100916
  Receipt Date: 20100916
  Transmission Date: 20110219
  Serious: Yes (Hospitalization)
  Sender: FDA-Public Use
  Company Number: None

PATIENT
  Sex: Female
  Weight: 101.1521 kg

DRUGS (12)
  1. HUMIRA [Suspect]
     Indication: RHEUMATOID ARTHRITIS
     Dosage: 40 MGS QW SQ
     Route: 058
     Dates: start: 20090301, end: 20100819
  2. CYMBALTA [Concomitant]
  3. TRAZODONE HCL [Concomitant]
  4. NEURONTIN [Concomitant]
  5. METHOTREXATE [Concomitant]
  6. FOLIC ACID [Concomitant]
  7. HYDROCHLOROTHIAZIDE [Concomitant]
  8. MIRAPEX [Concomitant]
  9. NEXIUM [Concomitant]
  10. METOPROLOL [Concomitant]
  11. CRESTOR [Concomitant]
  12. DARVOCET [Concomitant]

REACTIONS (2)
  - CELLULITIS [None]
  - STAPHYLOCOCCAL INFECTION [None]
